FAERS Safety Report 25962161 (Version 1)
Quarter: 2025Q4

REPORT INFORMATION
  Report Type: Spontaneous
  Country: US (occurrence: US)
  Receive Date: 20251027
  Receipt Date: 20251027
  Transmission Date: 20260118
  Serious: Yes (Other)
  Sender: ACCORD
  Company Number: US-Accord-510030

PATIENT
  Age: 69 Year
  Sex: Female

DRUGS (2)
  1. HYDROXYCHLOROQUINE [Suspect]
     Active Substance: HYDROXYCHLOROQUINE
     Indication: Rheumatoid arthritis
  2. ABATACEPT [Concomitant]
     Active Substance: ABATACEPT
     Indication: Rheumatoid arthritis
     Dates: start: 2016

REACTIONS (2)
  - Cardiomyopathy [Recovering/Resolving]
  - Microvascular coronary artery disease [Recovering/Resolving]

NARRATIVE: CASE EVENT DATE: 20180101
